FAERS Safety Report 17578798 (Version 1)
Quarter: 2020Q1

REPORT INFORMATION
  Report Type: Spontaneous
  Country: US (occurrence: US)
  Receive Date: 20200324
  Receipt Date: 20200324
  Transmission Date: 20200409
  Serious: Yes (Life-Threatening, Hospitalization)
  Sender: FDA-Public Use
  Company Number: US-TEVA-2020-US-1208914

PATIENT
  Age: 52 Year
  Sex: Female

DRUGS (26)
  1. PROPOFOL. [Suspect]
     Active Substance: PROPOFOL
     Indication: SEIZURE
     Route: 041
  2. VALPROIC ACID. [Concomitant]
     Active Substance: VALPROIC ACID
     Indication: SEIZURE
     Route: 065
  3. PIPERACILLIN AND TAZOBACTAM [Concomitant]
     Active Substance: PIPERACILLIN SODIUM\TAZOBACTAM SODIUM
  4. POLYETHYLENE GLYCOL [Concomitant]
     Active Substance: POLYETHYLENE GLYCOLS
  5. LORAZEPAM. [Concomitant]
     Active Substance: LORAZEPAM
     Indication: PARTIAL SEIZURES
     Dosage: 2 MG
     Route: 042
  6. LORAZEPAM. [Concomitant]
     Active Substance: LORAZEPAM
     Route: 042
  7. PENTOBARBITAL. [Interacting]
     Active Substance: PENTOBARBITAL
     Indication: SEIZURE
     Route: 040
  8. PENTOBARBITAL. [Interacting]
     Active Substance: PENTOBARBITAL
     Route: 041
  9. DIAZEPAM. [Concomitant]
     Active Substance: DIAZEPAM
     Indication: PARTIAL SEIZURES
     Route: 042
  10. QUETIAPINE. [Concomitant]
     Active Substance: QUETIAPINE
     Indication: SEIZURE
  11. VANCOMYCIN [Concomitant]
     Active Substance: VANCOMYCIN
  12. PRAZOSIN. [Concomitant]
     Active Substance: PRAZOSIN
  13. LEVETIRACETAM. [Suspect]
     Active Substance: LEVETIRACETAM
     Indication: SEIZURE
     Dosage: 2000 MG
     Route: 042
  14. PHENYTOIN. [Suspect]
     Active Substance: PHENYTOIN
     Indication: SEIZURE
     Route: 065
  15. FLUOXETINE [Concomitant]
     Active Substance: FLUOXETINE HYDROCHLORIDE
     Route: 065
  16. NORTRIPTYLINE [Concomitant]
     Active Substance: NORTRIPTYLINE
     Indication: SEIZURE
  17. CLOBAZAM. [Suspect]
     Active Substance: CLOBAZAM
     Indication: SEIZURE
     Dosage: ADMINISTERED THROUGH AN OROGASTRIC TUBE
     Route: 048
  18. PHENOBARBITAL. [Concomitant]
     Active Substance: PHENOBARBITAL
     Indication: SEIZURE
     Route: 042
  19. SENNA [Concomitant]
     Active Substance: SENNA LEAF\SENNOSIDES\SENNOSIDES A AND B
  20. FELBAMATE. [Interacting]
     Active Substance: FELBAMATE
     Indication: SEIZURE
     Dosage: ADMINISTERED THROUGH AN OROGASTRIC TUBE
     Route: 048
  21. FOLIC ACID. [Concomitant]
     Active Substance: FOLIC ACID
  22. MIDAZOLAM. [Suspect]
     Active Substance: MIDAZOLAM
     Indication: SEIZURE
     Route: 041
  23. OXCARBAZEPINE. [Interacting]
     Active Substance: OXCARBAZEPINE
     Indication: SEIZURE
     Dosage: ADMINISTERED THROUGH AN OROGASTRIC TUBE
     Route: 048
  24. ENOXAPARIN [Concomitant]
     Active Substance: ENOXAPARIN
     Route: 058
  25. NOREPINEPHRINE. [Suspect]
     Active Substance: NOREPINEPHRINE
     Indication: HYPOTENSION
     Route: 065
  26. LACOSAMIDE. [Interacting]
     Active Substance: LACOSAMIDE
     Indication: SEIZURE
     Dosage: 200 MG
     Route: 042

REACTIONS (15)
  - Drug interaction [Unknown]
  - Cardiotoxicity [Unknown]
  - Electrocardiogram ST segment elevation [Unknown]
  - Circulatory collapse [Unknown]
  - Bradycardia [Unknown]
  - Conduction disorder [Unknown]
  - Unmasking of previously unidentified disease [Unknown]
  - Toxicity to various agents [Unknown]
  - Tachycardia [Unknown]
  - Arrhythmia [Unknown]
  - Haemodynamic instability [Unknown]
  - Ventricular extrasystoles [Unknown]
  - Sinus rhythm [Unknown]
  - Electrocardiogram QRS complex prolonged [Unknown]
  - Drug ineffective [Unknown]
